FAERS Safety Report 10051725 (Version 2)
Quarter: 2014Q2

REPORT INFORMATION
  Report Type: Spontaneous
  Country: PH (occurrence: PH)
  Receive Date: 20140401
  Receipt Date: 20140404
  Transmission Date: 20141212
  Serious: Yes (Death, Disabling, Other)
  Sender: FDA-Public Use
  Company Number: PH-009507513-1403PHL013321

PATIENT
  Age: 73 Year
  Sex: Male

DRUGS (1)
  1. JANUVIA [Suspect]
     Dosage: 1 DF, QD, 100 MG
     Route: 048
     Dates: start: 20121008

REACTIONS (3)
  - Death [Fatal]
  - Accident [Not Recovered/Not Resolved]
  - Spinal cord disorder [Not Recovered/Not Resolved]
